FAERS Safety Report 5836527-5 (Version None)
Quarter: 2008Q3

REPORT INFORMATION
  Report Type: 
  Country: None (occurrence: None)
  Receive Date: 20080801
  Receipt Date: 20080313
  Transmission Date: 20090109
  Serious: No
  Sender: FDA-Public Use
  Company Number: 20020080381

PATIENT
  Age: 58 Year
  Sex: Female

DRUGS (11)
  1. SOMATULINE DEPOT [Suspect]
     Indication: ACROMEGALY
     Dosage: 60MG(1 IN 28D), SUBCUT
     Route: 058
  2. LEVOXYL [Concomitant]
  3. CELEBREX [Concomitant]
  4. FLUOXETINE [Concomitant]
  5. LISINOPRIL [Concomitant]
  6. CHLORTHALIDONE [Concomitant]
  7. NORVASC [Concomitant]
  8. CORTEF [Concomitant]
  9. WARFARIN SODIUM [Concomitant]
  10. VITAMIN D [Concomitant]
  11. GLUCOSAMINE CHONDROIT [Concomitant]

REACTIONS (4)
  - ABDOMINAL PAIN [None]
  - DIZZINESS [None]
  - FLATULENCE [None]
  - NAUSEA [None]
